FAERS Safety Report 6629843-0 (Version None)
Quarter: 2010Q1

REPORT INFORMATION
  Report Type: 
  Country: None (occurrence: None)
  Receive Date: 20100311
  Receipt Date: 20090825
  Transmission Date: 20100710
  Serious: Yes (Hospitalization, Other)
  Sender: FDA-Public Use
  Company Number: US-BIOGENIDEC-2009BI020537

PATIENT
  Age: 40 Year
  Sex: Female

DRUGS (3)
  1. AVONEX [Suspect]
     Indication: MULTIPLE SCLEROSIS
     Route: 030
     Dates: start: 20080702
  2. AVONEX [Suspect]
     Route: 030
     Dates: start: 20040525, end: 20051110
  3. MEDICATION [Concomitant]

REACTIONS (3)
  - HYPERSENSITIVITY [None]
  - MULTIPLE SCLEROSIS RELAPSE [None]
  - URTICARIA [None]
